FAERS Safety Report 9353440 (Version 1)
Quarter: 2013Q2

REPORT INFORMATION
  Report Type: Spontaneous
  Country: US (occurrence: None)
  Receive Date: 20130617
  Receipt Date: 20130617
  Transmission Date: 20140414
  Serious: Yes (Hospitalization)
  Sender: FDA-Public Use
  Company Number: None

PATIENT
  Age: 14 Year
  Sex: Male
  Weight: 47.2 kg

DRUGS (2)
  1. METHOTREXATE [Suspect]
     Dates: end: 20130603
  2. PEG-L-ASPARAGINASE (PEGASPARGASE, ONCOSPAR) [Suspect]
     Dates: end: 20130529

REACTIONS (7)
  - Photopsia [None]
  - Postictal state [None]
  - Urinary incontinence [None]
  - Head injury [None]
  - Cerebral haemorrhage [None]
  - Brain oedema [None]
  - Venous thrombosis [None]
